FAERS Safety Report 8173580-0 (Version None)
Quarter: 2012Q1

REPORT INFORMATION
  Report Type: 
  Country: None (occurrence: None)
  Receive Date: 20120224
  Receipt Date: 20120217
  Transmission Date: 20120608
  Serious: Yes (Death)
  Sender: FDA-Public Use
  Company Number: ADR-2012-00253

PATIENT
  Age: 76 Year
  Sex: Male

DRUGS (2)
  1. BACLOFEN [Suspect]
     Indication: PAIN
     Dosage: 89.94 MCG/DAY
  2. BACLOFEN [Suspect]
     Indication: LUNG DISORDER
     Dosage: 89.94 MCG/DAY

REACTIONS (1)
  - LUNG NEOPLASM MALIGNANT [None]
